FAERS Safety Report 7212164-5 (Version None)
Quarter: 2011Q1

REPORT INFORMATION
  Report Type: 
  Country: None (occurrence: None)
  Receive Date: 20110106
  Receipt Date: 20101222
  Transmission Date: 20110831
  Serious: Yes (Hospitalization)
  Sender: FDA-Public Use
  Company Number: GB-CELGENEUS-167-CCAZA-10122507

PATIENT
  Age: 77 Year
  Sex: Male

DRUGS (1)
  1. AZACITIDINE [Suspect]
     Route: 051
     Dates: start: 20100719

REACTIONS (2)
  - INJECTION SITE CELLULITIS [None]
  - NEUTROPENIA [None]
